FAERS Safety Report 10037009 (Version 1)
Quarter: 2014Q1

REPORT INFORMATION
  Report Type: Spontaneous
  Country: US (occurrence: US)
  Receive Date: 20140326
  Receipt Date: 20140326
  Transmission Date: 20141002
  Serious: No
  Sender: FDA-Public Use
  Company Number: US-BIOGENIDEC-2014BI026473

PATIENT
  Age: 73 Year
  Sex: Female

DRUGS (12)
  1. TECFIDERA [Suspect]
     Indication: MULTIPLE SCLEROSIS
     Route: 048
  2. ALLOPURINOL [Concomitant]
  3. ALPRAZOLAM ER [Concomitant]
  4. CYMBALTA [Concomitant]
  5. GABAPENTIN [Concomitant]
  6. LISINOPRIL [Concomitant]
  7. RISPERIDONE [Concomitant]
  8. SIMVASTATIN [Concomitant]
  9. SPIRIVA HANDIHALER [Concomitant]
  10. TRAMADOL HCL [Concomitant]
  11. TRAZODONE HCL [Concomitant]
  12. VITAMIN D3 [Concomitant]

REACTIONS (1)
  - Night sweats [Not Recovered/Not Resolved]
